APPROVED DRUG PRODUCT: TAVABOROLE
Active Ingredient: TAVABOROLE
Strength: 5%
Dosage Form/Route: SOLUTION;TOPICAL
Application: A212168 | Product #001 | TE Code: AB
Applicant: LUPIN LTD
Approved: Feb 8, 2021 | RLD: No | RS: No | Type: RX